FAERS Safety Report 8426467-X (Version None)
Quarter: 2012Q2

REPORT INFORMATION
  Report Type: 
  Country: None (occurrence: None)
  Receive Date: 20120611
  Receipt Date: 20120530
  Transmission Date: 20120825
  Serious: Yes (Other)
  Sender: FDA-Public Use
  Company Number: CN-SANOFI-AVENTIS-2012SA040419

PATIENT

DRUGS (4)
  1. LEUCOVORIN CALCIUM [Suspect]
     Dosage: FOR 2H, ON DAYS 1 AND 2 , EVERY TWO WEEKS, AND TWO REPETITIONS COMPRISED ONE CYCLE.
     Route: 041
  2. FLUOROURACIL [Suspect]
     Dosage: ON DAYS 1 AND 2, EVERY TWO WEEKS, AND TWO REPETITIONS COMPRISED ONE CYCLE.
     Route: 042
  3. FLUOROURACIL [Suspect]
     Dosage: CONTINUOUS ON DAYS 1 AND 2, EVERY TWO WEEKS, AND TWO REPETITIONS COMPRISED ONE CYCLE.
     Route: 041
  4. OXALIPLATIN [Suspect]
     Dosage: FOR TWO HOURS ON DAY 1 EVERY 2 WEEKS. AND TWO REPETITIONS COMPRISED ONE CYCLE.
     Route: 041

REACTIONS (1)
  - BONE MARROW FAILURE [None]
